FAERS Safety Report 19560612 (Version 1)
Quarter: 2021Q3

REPORT INFORMATION
  Report Type: Spontaneous
  Country: US (occurrence: US)
  Receive Date: 20210716
  Receipt Date: 20210716
  Transmission Date: 20211014
  Serious: No
  Sender: FDA-Public Use
  Company Number: US-ORGANON-O2107USA000235

PATIENT
  Age: 21 Year
  Sex: Female
  Weight: 59.87 kg

DRUGS (1)
  1. NEXPLANON [Suspect]
     Active Substance: ETONOGESTREL
     Indication: CONTRACEPTION
     Dosage: 1 DOSAGE FORM
     Route: 059
     Dates: start: 20180531, end: 20210701

REACTIONS (3)
  - Device breakage [Recovered/Resolved]
  - Incorrect product administration duration [Unknown]
  - Menstruation irregular [Recovering/Resolving]

NARRATIVE: CASE EVENT DATE: 20210531
